FAERS Safety Report 8228276-3 (Version None)
Quarter: 2012Q1

REPORT INFORMATION
  Report Type: 
  Country: None (occurrence: None)
  Receive Date: 20120322
  Receipt Date: 20111222
  Transmission Date: 20120608
  Serious: Yes (Life-Threatening)
  Sender: FDA-Public Use
  Company Number: US-BRISTOL-MYERS SQUIBB COMPANY-16176893

PATIENT
  Age: 85 Year
  Sex: Male

DRUGS (3)
  1. ERBITUX [Suspect]
     Indication: HEAD AND NECK CANCER
     Dosage: 400 MG.
     Route: 042
     Dates: start: 20111006, end: 20111020
  2. CARBOPLATIN [Concomitant]
     Dates: end: 20111020
  3. FLUOROURACIL [Concomitant]
     Dates: end: 20111020

REACTIONS (1)
  - ANAPHYLACTIC REACTION [None]
